FAERS Safety Report 12647021 (Version 1)
Quarter: 2016Q3

REPORT INFORMATION
  Report Type: Spontaneous
  Country: US (occurrence: None)
  Receive Date: 20160811
  Receipt Date: 20160811
  Transmission Date: 20161109
  Serious: Yes (Disabling)
  Sender: FDA-Public Use
  Company Number: None

PATIENT
  Age: 22 Year
  Sex: Female
  Weight: 54.43 kg

DRUGS (1)
  1. AMOXICILLIN. [Suspect]
     Active Substance: AMOXICILLIN
     Indication: ANTIBIOTIC PROPHYLAXIS
     Dosage: 15 TABLET(S) EVERY 8 HOURS TAKEN BY MOUTH
     Route: 048
     Dates: start: 20160617, end: 20160622

REACTIONS (7)
  - Dizziness [None]
  - Eye irritation [None]
  - Depression [None]
  - Tinnitus [None]
  - Nausea [None]
  - Hyperacusis [None]
  - Ear pain [None]

NARRATIVE: CASE EVENT DATE: 20160810
